FAERS Safety Report 5483192-5 (Version None)
Quarter: 2007Q4

REPORT INFORMATION
  Report Type: 
  Country: None (occurrence: None)
  Receive Date: 20071009
  Receipt Date: 20071001
  Transmission Date: 20080405
  Serious: Yes (Hospitalization, Congenital Anomaly, Other)
  Sender: FDA-Public Use
  Company Number: 2007SP019747

PATIENT
  Sex: Female

DRUGS (8)
  1. BETAMETHASONE [Suspect]
     Indication: FOETAL GROWTH RETARDATION
     Dates: start: 20070703, end: 20070801
  2. SALBUTAMOL (SALBUTAMOL) [Suspect]
     Indication: TOCOLYSIS
     Dates: start: 20070730, end: 20070730
  3. TRACTOCILE (NO PREF. NAME) [Suspect]
     Indication: TOCOLYSIS
     Dates: start: 20070730, end: 20070801
  4. NICARDIPINE HCL [Suspect]
     Indication: TOCOLYSIS
     Dates: start: 20070801, end: 20070808
  5. SPASFON (SPASFON) [Suspect]
     Indication: ABDOMINAL PAIN
     Dates: start: 20070801, end: 20070808
  6. ATARAX [Suspect]
     Indication: ANXIETY
     Dates: start: 20070801, end: 20070815
  7. XANAX [Suspect]
     Indication: ANXIETY
     Dates: start: 20070801, end: 20070815
  8. OXAZEPAM [Suspect]
     Indication: ANXIETY
     Dates: start: 20070801, end: 20070816

REACTIONS (7)
  - DRUG EXPOSURE DURING PREGNANCY [None]
  - DUCTUS ARTERIOSUS PREMATURE CLOSURE [None]
  - FOETAL DISORDER [None]
  - MECHANICAL VENTILATION [None]
  - PULMONARY HYPERTENSION [None]
  - RIGHT VENTRICULAR FAILURE [None]
  - RIGHT VENTRICULAR HYPERTROPHY [None]
